FAERS Safety Report 5886711-X (Version None)
Quarter: 2008Q3

REPORT INFORMATION
  Report Type: 
  Country: None (occurrence: None)
  Receive Date: 20080917
  Receipt Date: 20080911
  Transmission Date: 20090109
  Serious: Yes (Other)
  Sender: FDA-Public Use
  Company Number: PHBS2007FI13915

PATIENT
  Sex: Male

DRUGS (3)
  1. ZOMETA [Suspect]
     Indication: BONE PAIN
     Dates: start: 20070809
  2. MAREVAN [Concomitant]
     Indication: PROPHYLAXIS
     Dates: start: 20050101
  3. BISOPROLOL FUMARATE [Concomitant]
     Indication: BLOOD PRESSURE
     Dates: start: 20020101

REACTIONS (8)
  - AQUEOUS FIBRIN [None]
  - CILIARY HYPERAEMIA [None]
  - CORNEAL DEPOSITS [None]
  - EYE PAIN [None]
  - IRITIS [None]
  - MYDRIASIS [None]
  - MYODESOPSIA [None]
  - PHOTOPHOBIA [None]
